FAERS Safety Report 25849095 (Version 1)
Quarter: 2025Q3

REPORT INFORMATION
  Report Type: Spontaneous
  Country: US (occurrence: None)
  Receive Date: 20250925
  Receipt Date: 20250925
  Transmission Date: 20251020
  Serious: Yes (Hospitalization)
  Sender: FDA-CTU
  Company Number: None

PATIENT
  Sex: Male
  Weight: 65.25 kg

DRUGS (3)
  1. WINREVAIR [Suspect]
     Active Substance: SOTATERCEPT-CSRK
     Indication: Pulmonary arterial hypertension
     Dosage: OTHER FREQUENCY : EVERY 3 WEEKS;?
     Route: 058
     Dates: start: 20250823
  2. REMODULIN [Suspect]
     Active Substance: TREPROSTINIL
  3. PREDNISONE [Suspect]
     Active Substance: PREDNISONE

REACTIONS (4)
  - Back pain [None]
  - Spinal fracture [None]
  - Diarrhoea [None]
  - Vomiting [None]
